FAERS Safety Report 4312323-5 (Version None)
Quarter: 2004Q1

REPORT INFORMATION
  Report Type: 
  Country: None (occurrence: None)
  Receive Date: 20040305
  Receipt Date: 20040227
  Transmission Date: 20041129
  Serious: Yes (Life-Threatening, Hospitalization)
  Sender: FDA-Public Use
  Company Number: FR-GLAXOSMITHKLINE-B0325074A

PATIENT
  Age: 34 Year
  Sex: Male

DRUGS (14)
  1. FORTUM [Suspect]
     Route: 042
     Dates: start: 20040128, end: 20040203
  2. AUGMENTIN [Suspect]
     Route: 042
  3. CIFLOX [Suspect]
     Route: 042
  4. EUPRESSYL [Suspect]
     Route: 042
  5. PERFALGAN [Suspect]
     Route: 042
     Dates: start: 20040118, end: 20040203
  6. ERYTHROMYCIN [Suspect]
     Route: 042
     Dates: start: 20040118, end: 20040123
  7. BURINEX [Suspect]
     Route: 065
     Dates: start: 20040118, end: 20040203
  8. OXACILLIN [Suspect]
     Route: 042
     Dates: start: 20040206, end: 20040208
  9. SUFENTA [Concomitant]
     Route: 042
  10. MIDAZOLAM HCL [Concomitant]
     Route: 065
  11. CORTICOTHERAPY [Concomitant]
     Route: 065
  12. SALBUTAMOL [Concomitant]
     Indication: ASTHMA
     Route: 065
  13. BRICANYL [Concomitant]
     Indication: ASTHMA
     Route: 055
  14. HELIOX [Concomitant]
     Indication: ASTHMA
     Route: 055

REACTIONS (7)
  - AGRANULOCYTOSIS [None]
  - DERMATITIS BULLOUS [None]
  - NEUTROPHIL COUNT DECREASED [None]
  - NIKOLSKY'S SIGN [None]
  - SEPSIS [None]
  - SUPERINFECTION [None]
  - TOXIC SKIN ERUPTION [None]
